FAERS Safety Report 24925023 (Version 1)
Quarter: 2025Q1

REPORT INFORMATION
  Report Type: Report from Study
  Country: US (occurrence: US)
  Receive Date: 20250204
  Receipt Date: 20250204
  Transmission Date: 20250408
  Serious: No
  Sender: EXELIXIS
  Company Number: US-EXELIXIS-CABO-24077585

PATIENT
  Sex: Male

DRUGS (4)
  1. CABOMETYX [Suspect]
     Active Substance: CABOZANTINIB S-MALATE
     Indication: Malignant connective tissue neoplasm
     Dosage: 40 MG, QD
     Route: 048
     Dates: start: 202404
  2. CABOMETYX [Suspect]
     Active Substance: CABOZANTINIB S-MALATE
     Indication: Soft tissue sarcoma
  3. NYVEPRIA [Concomitant]
     Active Substance: PEGFILGRASTIM-APGF
  4. STIVARGA [Concomitant]
     Active Substance: REGORAFENIB MONOHYDRATE

REACTIONS (2)
  - Adverse event [Unknown]
  - Off label use [Unknown]
